FAERS Safety Report 14698903 (Version 1)
Quarter: 2018Q1

REPORT INFORMATION
  Report Type: Spontaneous
  Country: US (occurrence: US)
  Receive Date: 20180330
  Receipt Date: 20180330
  Transmission Date: 20180509
  Serious: Yes (Death)
  Sender: FDA-Public Use
  Company Number: US-TAIHO ONCOLOGY INC-EU-2018-00411

PATIENT
  Age: 57 Year
  Sex: Male
  Weight: 106.96 kg

DRUGS (1)
  1. LONSURF [Suspect]
     Active Substance: TIPIRACIL HYDROCHLORIDE\TRIFLURIDINE
     Indication: COLON CANCER
     Dosage: CYCLE 1
     Route: 048
     Dates: start: 20180222

REACTIONS (1)
  - Death [Fatal]

NARRATIVE: CASE EVENT DATE: 20180228
